FAERS Safety Report 8593919-1 (Version None)
Quarter: 2012Q3

REPORT INFORMATION
  Report Type: 
  Country: None (occurrence: None)
  Receive Date: 20120814
  Receipt Date: 20120809
  Transmission Date: 20120928
  Serious: Yes (Other)
  Sender: FDA-Public Use
  Company Number: FR-ABBOTT-12P-056-0966847-00

PATIENT
  Sex: Female

DRUGS (5)
  1. REYATAZ [Suspect]
     Route: 048
     Dates: start: 20110822, end: 20120313
  2. REYATAZ [Suspect]
     Indication: HIV INFECTION
     Dates: start: 20080801, end: 20090601
  3. NORVIR [Suspect]
     Indication: HIV INFECTION
     Dates: start: 20080401, end: 20090601
  4. NORVIR [Suspect]
     Route: 048
     Dates: start: 20110822, end: 20120413
  5. TRUVADA [Suspect]
     Indication: HIV INFECTION
     Route: 048
     Dates: start: 20080414

REACTIONS (2)
  - WEIGHT INCREASED [None]
  - LIVER DISORDER [None]
